FAERS Safety Report 7278991-3 (Version None)
Quarter: 2011Q1

REPORT INFORMATION
  Report Type: 
  Country: None (occurrence: None)
  Receive Date: 20110207
  Receipt Date: 20110125
  Transmission Date: 20110831
  Serious: Yes (Death)
  Sender: FDA-Public Use
  Company Number: US-TYCO HEALTHCARE/MALLINCKRODT-T201100158

PATIENT
  Age: 21 Year
  Sex: Female

DRUGS (6)
  1. OXYCODONE HCL [Suspect]
     Dosage: UNK
     Route: 048
  2. BUSPIRONE [Suspect]
     Route: 048
  3. LORAZEPAM [Suspect]
     Route: 048
  4. HEROIN [Suspect]
     Route: 048
  5. CLONAZEPAM [Suspect]
     Route: 048
  6. DIAZEPAM [Suspect]
     Route: 048

REACTIONS (1)
  - CARDIO-RESPIRATORY ARREST [None]
